FAERS Safety Report 7399476-X (Version None)
Quarter: 2011Q2

REPORT INFORMATION
  Report Type: 
  Country: None (occurrence: None)
  Receive Date: 20110407
  Receipt Date: 20110404
  Transmission Date: 20111010
  Serious: Yes (Death, Hospitalization, Other)
  Sender: FDA-Public Use
  Company Number: PHFR2011IE02308

PATIENT
  Sex: Male

DRUGS (1)
  1. CLOZARIL [Suspect]
     Indication: SCHIZOPHRENIA
     Dosage: 400 MG
     Route: 048
     Dates: start: 20090828

REACTIONS (7)
  - DEATH [None]
  - PYREXIA [None]
  - FALL [None]
  - DELIRIUM [None]
  - UPPER LIMB FRACTURE [None]
  - PNEUMONIA [None]
  - CONFUSIONAL STATE [None]
